FAERS Safety Report 9566306 (Version 1)
Quarter: 2013Q3

REPORT INFORMATION
  Report Type: Spontaneous
  Country: DE (occurrence: DE)
  Receive Date: 20130930
  Receipt Date: 20130930
  Transmission Date: 20140515
  Serious: Yes (Life-Threatening, Hospitalization, Other)
  Sender: FDA-Public Use
  Company Number: DE-ROXANE LABORATORIES, INC.-2013-RO-01596RO

PATIENT
  Age: 31 Year
  Sex: Male
  Weight: 67 kg

DRUGS (8)
  1. METHADONE [Suspect]
     Indication: DRUG DEPENDENCE
     Route: 048
  2. ONDANSETRON [Suspect]
     Indication: NAUSEA
     Route: 042
  3. ESCITALOPRAM [Suspect]
  4. ESOMEPRAZOLE [Concomitant]
     Route: 042
  5. BUTYLSCOPOLAMINE [Concomitant]
     Route: 042
  6. METAMIZOLE [Concomitant]
     Route: 042
  7. PARACETAMOL [Concomitant]
     Route: 042
  8. PETHIDINE [Concomitant]
     Route: 042

REACTIONS (9)
  - Electrocardiogram QT prolonged [Recovered/Resolved]
  - Torsade de pointes [Recovered/Resolved]
  - Pulse absent [Recovered/Resolved]
  - Ventricular tachycardia [Recovered/Resolved]
  - Abdominal pain upper [Recovered/Resolved]
  - Grand mal convulsion [Unknown]
  - Faecaloma [Unknown]
  - Hypomagnesaemia [Unknown]
  - Hypokalaemia [Recovered/Resolved]
